FAERS Safety Report 15557924 (Version 3)
Quarter: 2018Q4

REPORT INFORMATION
  Report Type: Spontaneous
  Country: PT (occurrence: PT)
  Receive Date: 20181027
  Receipt Date: 20181120
  Transmission Date: 20190205
  Serious: Yes (Death, Other)
  Sender: FDA-Public Use
  Company Number: PT-009507513-1810PRT009638

PATIENT
  Age: 46 Year
  Sex: Female
  Weight: 67 kg

DRUGS (2)
  1. ZERBAXA [Suspect]
     Active Substance: CEFTOLOZANE SULFATE\TAZOBACTAM SODIUM
     Indication: PSEUDOMONAL BACTERAEMIA
     Dosage: 1.5 GRAM, Q8H
  2. COLISTIN [Concomitant]
     Active Substance: COLISTIN
     Dosage: UNK

REACTIONS (3)
  - Septic shock [Fatal]
  - Off label use [Unknown]
  - Multiple organ dysfunction syndrome [Fatal]
